FAERS Safety Report 16294718 (Version 2)
Quarter: 2019Q4

REPORT INFORMATION
  Report Type: Spontaneous
  Country: US (occurrence: US)
  Receive Date: 20190509
  Receipt Date: 20191022
  Transmission Date: 20200122
  Serious: No
  Sender: FDA-Public Use
  Company Number: US-ROCHE-2216077

PATIENT
  Sex: Male

DRUGS (5)
  1. ESBRIET [Suspect]
     Active Substance: PIRFENIDONE
     Indication: IDIOPATHIC PULMONARY FIBROSIS
     Dosage: 3 TABLETS 3 TIMES A DAY WITH MEALS
     Route: 048
     Dates: start: 20180622
  2. NASONEX [Concomitant]
     Active Substance: MOMETASONE FUROATE
  3. ELIQUIS [Concomitant]
     Active Substance: APIXABAN
  4. QVAR [Concomitant]
     Active Substance: BECLOMETHASONE DIPROPIONATE
  5. VALSARTAN. [Concomitant]
     Active Substance: VALSARTAN

REACTIONS (2)
  - Gastric disorder [Unknown]
  - Dyspepsia [Not Recovered/Not Resolved]
